FAERS Safety Report 11030372 (Version 3)
Quarter: 2015Q3

REPORT INFORMATION
  Report Type: Report from Study
  Country: BR (occurrence: BR)
  Receive Date: 20150415
  Receipt Date: 20150706
  Transmission Date: 20151125
  Serious: Yes (Other)
  Sender: FDA-Public Use
  Company Number: PHHY2014BR143591

PATIENT
  Age: 69 Year
  Sex: Male
  Weight: 66 kg

DRUGS (8)
  1. SANDOSTATIN LAR DEPOT [Suspect]
     Active Substance: OCTREOTIDE ACETATE
     Indication: LUNG NEOPLASM MALIGNANT
  2. SANDOSTATIN LAR DEPOT [Suspect]
     Active Substance: OCTREOTIDE ACETATE
     Indication: BONE CANCER
  3. DIOSMIN SDU [Concomitant]
     Active Substance: DIOSMIN
     Indication: LIMB DISCOMFORT
     Dosage: 1 DF, QD (1 ENVELOPE)
     Route: 065
  4. HIDROCLOROTIAZIDE [Concomitant]
     Active Substance: HYDROCHLOROTHIAZIDE
     Indication: LIMB DISCOMFORT
     Dosage: 1 DF, QD
     Route: 065
  5. SANDOSTATIN LAR DEPOT [Suspect]
     Active Substance: OCTREOTIDE ACETATE
     Indication: RENAL CANCER
  6. SANDOSTATIN LAR DEPOT [Suspect]
     Active Substance: OCTREOTIDE ACETATE
     Indication: HEPATIC CANCER
     Dosage: 1 DF, QMO
     Route: 030
     Dates: start: 20141204
  7. SANDOSTATIN LAR DEPOT [Suspect]
     Active Substance: OCTREOTIDE ACETATE
     Indication: HEAD AND NECK CANCER
     Dosage: 1 DF, QMO
     Route: 030
  8. CENTRUM [Concomitant]
     Active Substance: VITAMINS
     Indication: ASTHENIA
     Dosage: QD (AFTER LUNCH)
     Route: 065

REACTIONS (13)
  - Injection site pain [Recovered/Resolved]
  - Off label use [Unknown]
  - Gait disturbance [Recovering/Resolving]
  - Sciatica [Recovering/Resolving]
  - Lymphatic disorder [Unknown]
  - Pain in extremity [Recovered/Resolved]
  - Peripheral swelling [Recovering/Resolving]
  - Muscular weakness [Recovered/Resolved]
  - Neuritis [Recovering/Resolving]
  - Injection site discomfort [Unknown]
  - Weight increased [Unknown]
  - Back pain [Recovering/Resolving]
  - Neoplasm malignant [Recovering/Resolving]

NARRATIVE: CASE EVENT DATE: 20141206
